FAERS Safety Report 15548176 (Version 1)
Quarter: 2018Q4

REPORT INFORMATION
  Report Type: Report from Study
  Country: CA (occurrence: CA)
  Receive Date: 20181024
  Receipt Date: 20181024
  Transmission Date: 20190205
  Serious: Yes (Hospitalization)
  Sender: FDA-Public Use
  Company Number: CA-TAKEDA-2018TUS025096

PATIENT
  Age: 41 Year
  Sex: Male
  Weight: 74 kg

DRUGS (2)
  1. VEDOLIZUMAB [Suspect]
     Active Substance: VEDOLIZUMAB
     Indication: CROHN^S DISEASE
     Dosage: 300 MG, UNK
     Route: 042
     Dates: start: 20171019
  2. VEDOLIZUMAB [Suspect]
     Active Substance: VEDOLIZUMAB
     Dosage: 300 MG, Q4WEEKS
     Route: 042
     Dates: start: 20181002, end: 20181002

REACTIONS (6)
  - Crohn^s disease [Not Recovered/Not Resolved]
  - Blood alkaline phosphatase increased [Unknown]
  - Treatment failure [Unknown]
  - Stoma site ulcer [Unknown]
  - Flank pain [Unknown]
  - Off label use [Unknown]

NARRATIVE: CASE EVENT DATE: 20180615
